FAERS Safety Report 13896380 (Version 1)
Quarter: 2017Q3

REPORT INFORMATION
  Report Type: Spontaneous
  Country: US (occurrence: None)
  Receive Date: 20170815
  Receipt Date: 20170815
  Transmission Date: 20171127
  Serious: Yes (Other)
  Sender: FDA-Public Use
  Company Number: None

PATIENT
  Age: 13 Year
  Sex: Male

DRUGS (1)
  1. METHYLPHENIDATE ER 54MG MYLAN [Suspect]
     Active Substance: METHYLPHENIDATE
     Dosage: 54 MG QAM ORAL
     Route: 048
     Dates: start: 20170805, end: 20170811

REACTIONS (3)
  - Migraine [None]
  - Nausea [None]
  - Product substitution issue [None]

NARRATIVE: CASE EVENT DATE: 20170811
